FAERS Safety Report 14660325 (Version 1)
Quarter: 2018Q1

REPORT INFORMATION
  Report Type: Spontaneous
  Country: FR (occurrence: FR)
  Receive Date: 20180320
  Receipt Date: 20180320
  Transmission Date: 20180509
  Serious: Yes (Hospitalization)
  Sender: FDA-Public Use
  Company Number: FR-PFIZER INC-2018109261

PATIENT
  Age: 84 Year
  Sex: Female
  Weight: 105 kg

DRUGS (9)
  1. AMLODIPINE [Suspect]
     Active Substance: AMLODIPINE BESYLATE
     Indication: HYPERTENSION
     Dosage: 10 MG, 1X/DAY
     Route: 048
     Dates: end: 201802
  2. PREVISCAN (FLUINDIONE) [Concomitant]
     Active Substance: FLUINDIONE
  3. NEBIVOLOL. [Concomitant]
     Active Substance: NEBIVOLOL
  4. DICLOFENAC [Concomitant]
     Active Substance: DICLOFENAC
     Route: 061
  5. BROMAZEPAM [Concomitant]
     Active Substance: BROMAZEPAM
  6. ARCOXIA [Concomitant]
     Active Substance: ETORICOXIB
  7. IRBESARTAN. [Concomitant]
     Active Substance: IRBESARTAN
  8. LANSOPRAZOLE. [Concomitant]
     Active Substance: LANSOPRAZOLE
  9. CORDARONE [Concomitant]
     Active Substance: AMIODARONE HYDROCHLORIDE

REACTIONS (1)
  - Lymphoedema [Recovering/Resolving]

NARRATIVE: CASE EVENT DATE: 20180128
